FAERS Safety Report 15881073 (Version 2)
Quarter: 2019Q1

REPORT INFORMATION
  Report Type: Spontaneous
  Country: DE (occurrence: DE)
  Receive Date: 20190128
  Receipt Date: 20190131
  Transmission Date: 20190417
  Serious: Yes (Other)
  Sender: FDA-Public Use
  Company Number: DE-MYLANLABS-2019M1007183

PATIENT
  Age: 32 Year
  Sex: Female
  Weight: 60 kg

DRUGS (13)
  1. ADALIMUMAB [Suspect]
     Active Substance: ADALIMUMAB
     Indication: JUVENILE IDIOPATHIC ARTHRITIS
     Dosage: DOSAGE FORM: UNSPECIFIED
     Route: 065
  2. GOLIMUMAB [Suspect]
     Active Substance: GOLIMUMAB
     Indication: JUVENILE IDIOPATHIC ARTHRITIS
  3. HUMIRA [Suspect]
     Active Substance: ADALIMUMAB
     Indication: COLITIS ULCERATIVE
     Dosage: DOSAGE FORM: UNSPECIFIED
     Route: 065
  4. HUMIRA [Suspect]
     Active Substance: ADALIMUMAB
     Indication: JUVENILE IDIOPATHIC ARTHRITIS
     Dosage: DOSAGE FORM: UNSPECIFIED
     Route: 065
     Dates: start: 2016
  5. METHOTREXATE. [Suspect]
     Active Substance: METHOTREXATE
     Dosage: DOSAGE FORM: UNSPECIFIED
     Route: 065
  6. AZATHIOPRINE. [Suspect]
     Active Substance: AZATHIOPRINE
     Indication: JUVENILE IDIOPATHIC ARTHRITIS
     Dosage: DOSAGE FORM: UNSPECIFIED
     Route: 065
     Dates: start: 2008
  7. GOLIMUMAB [Suspect]
     Active Substance: GOLIMUMAB
     Indication: COLITIS ULCERATIVE
     Dosage: UNK
     Route: 058
  8. METHOTREXATE. [Suspect]
     Active Substance: METHOTREXATE
     Indication: JUVENILE IDIOPATHIC ARTHRITIS
     Dosage: DOSAGE FORM: UNSPECIFIED
     Route: 065
     Dates: start: 2012
  9. INFLIXIMAB RECOMBINANT [Suspect]
     Active Substance: INFLIXIMAB
     Indication: COLITIS ULCERATIVE
     Dosage: DOSAGE FORM: LYOPHILIZED POWDER
     Route: 042
     Dates: start: 2012
  10. ADALIMUMAB [Suspect]
     Active Substance: ADALIMUMAB
     Indication: COLITIS ULCERATIVE
  11. INFLIXIMAB RECOMBINANT [Suspect]
     Active Substance: INFLIXIMAB
     Indication: JUVENILE IDIOPATHIC ARTHRITIS
     Dosage: 5 MILLIGRAM/KILOGRAM
     Route: 042
  12. METHOTREXATE. [Suspect]
     Active Substance: METHOTREXATE
     Indication: COLITIS ULCERATIVE
     Dosage: DOSAGE FORM: UNSPECIFIED
     Route: 065
     Dates: start: 2005
  13. AZATHIOPRINE. [Suspect]
     Active Substance: AZATHIOPRINE
     Indication: COLITIS ULCERATIVE
     Dosage: DOSAGE FORM: UNSPECIFIED
     Route: 065

REACTIONS (4)
  - Immunosuppressant drug level decreased [Unknown]
  - Juvenile idiopathic arthritis [Unknown]
  - Treatment failure [Unknown]
  - Rheumatoid arthritis [Unknown]

NARRATIVE: CASE EVENT DATE: 2012
